FAERS Safety Report 7608413-1 (Version None)
Quarter: 2011Q3

REPORT INFORMATION
  Report Type: 
  Country: None (occurrence: None)
  Receive Date: 20110713
  Receipt Date: 20110713
  Transmission Date: 20111222
  Serious: No
  Sender: FDA-Public Use
  Company Number: None

PATIENT

DRUGS (2)
  1. CRESTOR [Suspect]
  2. DEPAKOTE [Suspect]

REACTIONS (2)
  - MYALGIA [None]
  - TYPE 2 DIABETES MELLITUS [None]
